FAERS Safety Report 16454473 (Version 6)
Quarter: 2023Q4

REPORT INFORMATION
  Report Type: Report from Study
  Country: JP (occurrence: JP)
  Receive Date: 20190620
  Receipt Date: 20231221
  Transmission Date: 20240109
  Serious: Yes (Death, Hospitalization)
  Sender: FDA-Public Use
  Company Number: JP-ABBVIE-19S-087-2760322-00

PATIENT
  Age: 72 Year
  Sex: Male
  Weight: 55 kg

DRUGS (15)
  1. CARBIDOPA\LEVODOPA [Suspect]
     Active Substance: CARBIDOPA\LEVODOPA
     Indication: Parkinson^s disease
     Dosage: MD: 11 ML, CD: 2.3 ML/HR ? 16 HRS, ED: 1 ML/UNIT ? 3
     Route: 050
     Dates: start: 20171127, end: 20180726
  2. CARBIDOPA\LEVODOPA [Suspect]
     Active Substance: CARBIDOPA\LEVODOPA
     Dosage: MD: 11 ML, CD: 2.2 ML/HR ? 16 HRS, ED: 2 ML/UNIT ? 3
     Route: 050
     Dates: start: 20180729, end: 20180829
  3. CARBIDOPA\LEVODOPA [Suspect]
     Active Substance: CARBIDOPA\LEVODOPA
     Dosage: MD: 10 ML, CD: 2.2 ML/HR ? 16 HRS, ED: 2 ML/UNIT ? 3
     Route: 050
     Dates: start: 20180906, end: 20190615
  4. CARBIDOPA\LEVODOPA [Suspect]
     Active Substance: CARBIDOPA\LEVODOPA
     Dosage: MD: 11 ML, CD: 2.5 ML/HR ? 16 HRS, ED: 2 ML/UNIT ? 3
     Route: 050
     Dates: start: 20180829, end: 20180906
  5. ROTIGOTINE [Concomitant]
     Active Substance: ROTIGOTINE
     Indication: Parkinson^s disease
     Dosage: 9.0 MILLIGRAM
     Dates: start: 20171128, end: 20171225
  6. ROTIGOTINE [Concomitant]
     Active Substance: ROTIGOTINE
     Indication: Parkinson^s disease
     Dosage: 4.5 MILLIGRAM
     Dates: start: 20180423, end: 20190618
  7. ROTIGOTINE [Concomitant]
     Active Substance: ROTIGOTINE
     Indication: Parkinson^s disease
     Dosage: 6.75 MILLIGRAM
     Dates: start: 20171225, end: 20180423
  8. MAGNESIUM OXIDE [Concomitant]
     Active Substance: MAGNESIUM OXIDE
     Indication: Prophylaxis
     Dosage: 750 MILLIGRAM
     Dates: start: 20171128, end: 20190618
  9. SOLIFENACIN SUCCINATE [Concomitant]
     Active Substance: SOLIFENACIN SUCCINATE
     Indication: Prophylaxis
     Dosage: 5 MILLIGRAM
     Dates: start: 20180418, end: 20190618
  10. ZONISAMIDE AL [Concomitant]
     Indication: Parkinson^s disease
     Dosage: 50 MILLIGRAM
  11. Carbidopa hydrate and levodopa [Concomitant]
     Indication: Parkinson^s disease
     Dosage: 800 MILLIGRAM
     Dates: start: 20180726, end: 20180729
  12. Carbidopa hydrate and levodopa [Concomitant]
     Indication: Parkinson^s disease
     Dosage: 200 MILLIGRAM
     Dates: end: 20190618
  13. Carbidopa hydrate and levodopa [Concomitant]
     Indication: Parkinson^s disease
     Dosage: 1000 MILLIGRAM
     Dates: start: 20181129, end: 20181212
  14. FOLIC ACID [Concomitant]
     Active Substance: FOLIC ACID
     Indication: Prophylaxis
     Dosage: 5 MILLIGRAM
     Dates: end: 20190618
  15. AMLODIPINE BESYLATE [Concomitant]
     Active Substance: AMLODIPINE BESYLATE
     Indication: Product used for unknown indication
     Dosage: 1.25 MILLIGRAM
     Dates: end: 20190615

REACTIONS (8)
  - Sepsis [Fatal]
  - Device use issue [Recovered/Resolved]
  - Volvulus [Fatal]
  - Stoma site erythema [Recovered/Resolved]
  - Disseminated intravascular coagulation [Fatal]
  - Stoma site haemorrhage [Recovered/Resolved]
  - Flatulence [Unknown]
  - Fall [Recovered/Resolved]

NARRATIVE: CASE EVENT DATE: 20171226
